FAERS Safety Report 18980819 (Version 3)
Quarter: 2021Q1

REPORT INFORMATION
  Report Type: Spontaneous
  Country: JP (occurrence: JP)
  Receive Date: 20210308
  Receipt Date: 20210315
  Transmission Date: 20210420
  Serious: Yes (Hospitalization)
  Sender: FDA-Public Use
  Company Number: JP-JNJFOC-20210308081

PATIENT
  Age: 80 Year
  Sex: Male

DRUGS (3)
  1. XTANDI [Concomitant]
     Active Substance: ENZALUTAMIDE
     Indication: PROSTATE CANCER
     Dosage: DOSE UNKNOWN
     Route: 048
     Dates: start: 2021
  2. ZYTIGA [Suspect]
     Active Substance: ABIRATERONE ACETATE
     Indication: PROSTATE CANCER
     Dosage: DOSE UNKNOWN
     Route: 048
     Dates: start: 20200831, end: 20210228
  3. PREDNISOLONE. [Concomitant]
     Active Substance: PREDNISOLONE
     Indication: PROSTATE CANCER
     Route: 065

REACTIONS (4)
  - Renal failure [Recovered/Resolved]
  - Adrenal disorder [Unknown]
  - Cardiac failure [Recovered/Resolved]
  - Pseudoaldosteronism [Recovered/Resolved]

NARRATIVE: CASE EVENT DATE: 20200930
